FAERS Safety Report 8176671-3 (Version None)
Quarter: 2012Q1

REPORT INFORMATION
  Report Type: 
  Country: None (occurrence: None)
  Receive Date: 20120228
  Receipt Date: 20120216
  Transmission Date: 20120608
  Serious: Yes (Hospitalization)
  Sender: FDA-Public Use
  Company Number: 2012AP000427

PATIENT
  Age: 77 Year
  Sex: Male
  Weight: 87 kg

DRUGS (4)
  1. ERGOCALCIFEROL [Suspect]
     Indication: PRODUCT USED FOR UNKNOWN INDICATION
  2. CARBAMAZEPINE [Suspect]
     Indication: PAIN
     Dosage: 1250 MG;QD;PO,  200 MG;TID;PO
     Route: 048
  3. TERAZOSIN HCL [Concomitant]
  4. WARFARIN SODIUM [Suspect]
     Indication: PRODUCT USED FOR UNKNOWN INDICATION
     Dosage: 7.5 MG;	;PO, 5 MG;

REACTIONS (7)
  - TRIGEMINAL NEURALGIA [None]
  - NO THERAPEUTIC RESPONSE [None]
  - SEXUAL DYSFUNCTION [None]
  - DYSPHAGIA [None]
  - DEHYDRATION [None]
  - PAIN IN JAW [None]
  - CONDITION AGGRAVATED [None]
